FAERS Safety Report 4633965-3 (Version None)
Quarter: 2005Q2

REPORT INFORMATION
  Report Type: 
  Country: None (occurrence: None)
  Receive Date: 20050412
  Receipt Date: 20050328
  Transmission Date: 20051028
  Serious: Yes (Death)
  Sender: FDA-Public Use
  Company Number: 2005S1001568

PATIENT
  Age: 60 Year
  Sex: Female

DRUGS (21)
  1. CLOZAPINE [Suspect]
     Indication: SCHIZOAFFECTIVE DISORDER
     Dosage: 25 MG; QD; PO
     Route: 048
     Dates: start: 20020101, end: 20050201
  2. CLOZAPINE [Suspect]
     Dosage: 150 MG; HS; PO
     Route: 048
     Dates: start: 20020101, end: 20050201
  3. LISINOPRIL [Concomitant]
  4. ESTROGENS CONJUGATED [Concomitant]
  5. CALCITONIN-SALMON [Concomitant]
  6. MULTIVITAMINS, PLAIN [Concomitant]
  7. VITAMIN E [Concomitant]
  8. MOMETASONE FUROATE [Concomitant]
  9. TRAZODONE HCL [Concomitant]
  10. LOXAPINE [Concomitant]
  11. ISOSORBIDE MONONITRATE [Concomitant]
  12. DOCUSATE SODIUM [Concomitant]
  13. VALPROATE SODIUM [Concomitant]
  14. SALMETEROL XINAFOATE [Concomitant]
  15. CALCIUM/VITAMIN D NOS [Concomitant]
  16. GLYCERYL TRINITRATE [Concomitant]
  17. FLUTICASONE PROPIONATE [Concomitant]
  18. IPRATROPIUM BROMIDE/SALBUTAMOL SULFATE [Concomitant]
  19. MAGNESIUM HYDROXIDE/ALUMINIUM HYDROXIDE GEL [Concomitant]
  20. DRIED/SIMETICONE [Concomitant]
  21. ACETAMINOPHEN [Concomitant]

REACTIONS (2)
  - GENERAL PHYSICAL HEALTH DETERIORATION [None]
  - SEPSIS [None]
